FAERS Safety Report 4723871-8 (Version None)
Quarter: 2005Q3

REPORT INFORMATION
  Report Type: 
  Country: None (occurrence: None)
  Receive Date: 20050725
  Receipt Date: 20050713
  Transmission Date: 20060218
  Serious: Yes (Death)
  Sender: FDA-Public Use
  Company Number: JP-JNJFOC-20050703578

PATIENT

DRUGS (2)
  1. DUROTEP [Suspect]
     Route: 062
     Dates: end: 20050707
  2. DUROTEP [Suspect]
     Indication: CANCER PAIN
     Route: 062
     Dates: end: 20050707

REACTIONS (2)
  - RESPIRATORY DEPRESSION [None]
  - RESPIRATORY FAILURE [None]
